FAERS Safety Report 20990286 (Version 2)
Quarter: 2022Q3

REPORT INFORMATION
  Report Type: Spontaneous
  Country: US (occurrence: US)
  Receive Date: 20220622
  Receipt Date: 20220705
  Transmission Date: 20221027
  Serious: No
  Sender: FDA-Public Use
  Company Number: US-CELGENE-USA-20220303229

PATIENT
  Age: 77 Year
  Sex: Male

DRUGS (2)
  1. POMALYST [Suspect]
     Active Substance: POMALIDOMIDE
     Indication: Plasma cell myeloma
     Dosage: 4 MILLIGRAM?TAKE 1 CAPSULE BY MOUTH DAILY ON AN EMPTY STOMACH, AT LEAST 2 HRS BEFORE OR 2HRS AFTER A
     Route: 048
     Dates: start: 20211025
  2. POMALYST [Suspect]
     Active Substance: POMALIDOMIDE
     Indication: Plasma cell myeloma

REACTIONS (2)
  - Constipation [Unknown]
  - Full blood count decreased [Recovered/Resolved]
